FAERS Safety Report 5278628-9 (Version None)
Quarter: 2007Q1

REPORT INFORMATION
  Report Type: 
  Country: None (occurrence: None)
  Receive Date: 20061213
  Receipt Date: 20050624
  Transmission Date: 20070707
  Serious: No
  Sender: FDA-Public Use
  Company Number: 2005UW07084

PATIENT
  Age: 62 Year
  Sex: Male
  Weight: 74.842 kg

DRUGS (5)
  1. SEROQUEL [Suspect]
     Indication: BIPOLAR DISORDER
     Dosage: 100 MG BID PO
     Route: 048
  2. SEROQUEL [Suspect]
     Indication: BIPOLAR DISORDER
     Dosage: 900 MG QD PO
     Route: 048
  3. XANAX [Concomitant]
  4. TEGRETOL [Concomitant]
  5. DOCUSATE SODIUM [Concomitant]

REACTIONS (3)
  - CONVULSION [None]
  - HYPERTENSION [None]
  - SYNCOPE [None]
